FAERS Safety Report 9121998 (Version 1)
Quarter: 2013Q1

REPORT INFORMATION
  Report Type: Spontaneous
  Country: BR (occurrence: BR)
  Receive Date: 20130114
  Receipt Date: 20130114
  Transmission Date: 20140127
  Serious: Yes (Other)
  Sender: FDA-Public Use
  Company Number: BR-PFIZER INC-2013012313

PATIENT
  Age: 66 Year
  Sex: Female
  Weight: 70 kg

DRUGS (7)
  1. LYRICA [Suspect]
     Indication: FIBROMYALGIA
     Dosage: 75 MG (ONE CAPSULE), 1X/DAY
     Route: 048
     Dates: start: 20110618, end: 201107
  2. LYRICA [Suspect]
     Dosage: 150 MG (ONE CAPSULE), 2X/DAY
     Route: 048
     Dates: start: 201208
  3. AMITRIPTYLINE [Concomitant]
     Indication: FIBROMYALGIA
     Dosage: 0.5 MG (TWO TABLETS OF 0.25MG), 1X/DAY
     Dates: start: 201208
  4. AMITRIPTYLINE [Concomitant]
     Indication: SLEEP DISORDER
  5. FLUOXETINE [Concomitant]
     Indication: ANTIDEPRESSANT THERAPY
  6. CALCIUM [Concomitant]
     Indication: OSTEOPOROSIS
  7. CITALOR [Concomitant]
     Indication: BLOOD CHOLESTEROL ABNORMAL

REACTIONS (6)
  - Diabetes mellitus [Unknown]
  - Blood cholesterol abnormal [Unknown]
  - High density lipoprotein decreased [Unknown]
  - Blood triglycerides increased [Unknown]
  - Weight increased [Not Recovered/Not Resolved]
  - Drug ineffective [Recovered/Resolved]
